FAERS Safety Report 9482174 (Version 1)
Quarter: 2013Q3

REPORT INFORMATION
  Report Type: Report from Study
  Country: CA (occurrence: CA)
  Receive Date: 20130828
  Receipt Date: 20130828
  Transmission Date: 20140515
  Serious: Yes (Other)
  Sender: FDA-Public Use
  Company Number: CA-JNJFOC-20130812363

PATIENT
  Age: 50 Year
  Sex: Female
  Weight: 65 kg

DRUGS (5)
  1. REMICADE [Suspect]
     Indication: CROHN^S DISEASE
     Route: 042
     Dates: start: 20120223
  2. ZOLOFT [Concomitant]
     Route: 065
  3. TECTA [Concomitant]
     Route: 065
  4. IMURAN [Concomitant]
     Route: 065
  5. HRT [Concomitant]
     Route: 065

REACTIONS (2)
  - Nephrolithiasis [Recovered/Resolved]
  - Culture urine positive [Unknown]
